FAERS Safety Report 18431438 (Version 8)
Quarter: 2021Q3

REPORT INFORMATION
  Report Type: Report from Study
  Country: US (occurrence: US)
  Receive Date: 20201027
  Receipt Date: 20210823
  Transmission Date: 20211014
  Serious: Yes (Other)
  Sender: FDA-Public Use
  Company Number: NVSC2020US288400

PATIENT
  Age: 59 Year
  Sex: Female

DRUGS (1)
  1. KESIMPTA [Suspect]
     Active Substance: OFATUMUMAB
     Indication: MULTIPLE SCLEROSIS
     Dosage: 20 MG (SOLUTION)
     Route: 058
     Dates: start: 20201024

REACTIONS (11)
  - Crying [Unknown]
  - Pain [Recovered/Resolved]
  - Dyspnoea [Recovering/Resolving]
  - Emotional disorder [Recovered/Resolved]
  - Muscle spasticity [Not Recovered/Not Resolved]
  - Irritability [Recovered/Resolved]
  - Myalgia [Recovered/Resolved]
  - Multiple sclerosis [Recovering/Resolving]
  - Hypertension [Recovering/Resolving]
  - Chills [Recovered/Resolved]
  - Chills [Recovered/Resolved]

NARRATIVE: CASE EVENT DATE: 20201024
